FAERS Safety Report 6594456-6 (Version None)
Quarter: 2010Q1

REPORT INFORMATION
  Report Type: 
  Country: None (occurrence: None)
  Receive Date: 20100222
  Receipt Date: 20100212
  Transmission Date: 20100710
  Serious: Yes (Death)
  Sender: FDA-Public Use
  Company Number: ZA-PFIZER INC-2008080031

PATIENT
  Age: 50 Year
  Sex: Male
  Weight: 48 kg

DRUGS (10)
  1. IRINOTECAN HCL [Suspect]
     Indication: COLORECTAL CANCER
     Dosage: 656 MG, 2 WEEKLY
     Route: 042
     Dates: start: 20080514, end: 20080902
  2. BLINDED *NO SUBJECT DRUG [Suspect]
     Indication: COLORECTAL CANCER
     Dosage: 37.5 MG, 1X/DAY
     Route: 048
     Dates: start: 20080514, end: 20080830
  3. BLINDED *PLACEBO [Suspect]
     Indication: COLORECTAL CANCER
     Dosage: 37.5 MG, 1X/DAY
     Route: 048
     Dates: start: 20080514, end: 20080830
  4. BLINDED SUNITINIB MALATE [Suspect]
     Indication: COLORECTAL CANCER
     Dosage: 37.5 MG, 1X/DAY
     Route: 048
     Dates: start: 20080514, end: 20080830
  5. FLUOROURACIL [Suspect]
     Indication: COLORECTAL CANCER
     Dosage: 656 MG, 2 WEEKLY
     Route: 040
     Dates: start: 20080514, end: 20080902
  6. FLUOROURACIL [Suspect]
     Dosage: 3936 MG, 2 WEEKLY
     Route: 041
     Dates: start: 20080514, end: 20080904
  7. CALCIUM FOLINATE [Suspect]
     Indication: COLORECTAL CANCER
     Dosage: 328 MG, 2 WEEKLY
     Route: 042
     Dates: start: 20080514, end: 20080902
  8. LOPERAMIDE [Concomitant]
     Indication: DIARRHOEA
     Dates: start: 20080916
  9. CIPROFLOXACIN [Concomitant]
     Indication: ANTIBIOTIC THERAPY
     Dates: start: 20080916
  10. SLOW-K [Concomitant]
     Indication: BLOOD POTASSIUM DECREASED
     Dosage: 2 TABLETS
     Route: 048
     Dates: start: 20080916

REACTIONS (1)
  - RESPIRATORY FAILURE [None]
